FAERS Safety Report 4644071-6 (Version None)
Quarter: 2005Q2

REPORT INFORMATION
  Report Type: 
  Country: None (occurrence: None)
  Receive Date: 20050425
  Receipt Date: 20050415
  Transmission Date: 20051028
  Serious: Yes (Hospitalization)
  Sender: FDA-Public Use
  Company Number: US-ROCHE-402017

PATIENT
  Age: 64 Year
  Sex: Female

DRUGS (8)
  1. CAPECITABINE [Suspect]
     Route: 048
     Dates: start: 20050317
  2. SERTRALINE HYDROCHLORIDE [Concomitant]
  3. LANSOPRAZOLE [Concomitant]
  4. THYROXINE SODIUM [Concomitant]
  5. IBUPROFEN [Concomitant]
  6. SALBUTAMOL SULPHATE [Concomitant]
  7. PROMETHAZINE HCL [Concomitant]
  8. TYLENOL (CAPLET) [Concomitant]

REACTIONS (9)
  - DIARRHOEA [None]
  - HYPOVOLAEMIA [None]
  - LYMPHADENOPATHY [None]
  - NAUSEA [None]
  - ORAL INTAKE REDUCED [None]
  - PLATELET COUNT DECREASED [None]
  - PULMONARY CONGESTION [None]
  - RED BLOOD CELL COUNT DECREASED [None]
  - WHITE BLOOD CELL COUNT DECREASED [None]
